FAERS Safety Report 10407307 (Version 2)
Quarter: 2014Q3

REPORT INFORMATION
  Report Type: Spontaneous
  Country: US (occurrence: US)
  Receive Date: 20140825
  Receipt Date: 20140825
  Transmission Date: 20150326
  Serious: Yes (Death, Hospitalization, Other)
  Sender: FDA-Public Use
  Company Number: US-009507513-2008-187454-NL

PATIENT
  Sex: Female
  Weight: 58.97 kg

DRUGS (6)
  1. PREDNISONE. [Suspect]
     Active Substance: PREDNISONE
     Indication: TRANSPLANT REJECTION
     Dates: start: 200011
  2. NUVARING [Suspect]
     Active Substance: ETHINYL ESTRADIOL\ETONOGESTREL
     Indication: CONTRACEPTION
     Dosage: CONTINUING: NO
     Route: 067
     Dates: start: 20060725, end: 20061113
  3. CELLCEPT [Suspect]
     Active Substance: MYCOPHENOLATE MOFETIL\MYCOPHENOLATE MOFETIL HYDROCHLORIDE
     Indication: PRODUCT USED FOR UNKNOWN INDICATION
     Dates: end: 20070310
  4. FLUCONAZOLE. [Concomitant]
     Active Substance: FLUCONAZOLE
     Dosage: 150 MG, UNK
     Dates: start: 20060725
  5. METRONIDAZOLE. [Concomitant]
     Active Substance: METRONIDAZOLE
     Dosage: 500 MG, UNK
     Dates: start: 20060725
  6. HUMALOG [Concomitant]
     Active Substance: INSULIN LISPRO
     Dosage: 75/25

REACTIONS (14)
  - Immunosuppression [Not Recovered/Not Resolved]
  - Medical device complication [Unknown]
  - Acute myocardial infarction [Fatal]
  - Cardiac failure congestive [Unknown]
  - Myopathy [Unknown]
  - Coronary artery occlusion [Unknown]
  - Neuropathy peripheral [Unknown]
  - Depression [Unknown]
  - Dysphagia [Unknown]
  - Cardiogenic shock [Unknown]
  - Peripheral artery thrombosis [Unknown]
  - Cardio-respiratory arrest [Unknown]
  - Diabetic ketoacidosis [Fatal]
  - Heart transplant rejection [Unknown]

NARRATIVE: CASE EVENT DATE: 2006
